FAERS Safety Report 19321009 (Version 1)
Quarter: 2021Q2

REPORT INFORMATION
  Report Type: Spontaneous
  Country: US (occurrence: US)
  Receive Date: 20210528
  Receipt Date: 20210528
  Transmission Date: 20210717
  Serious: Yes (Death)
  Sender: FDA-Public Use
  Company Number: None

PATIENT
  Age: 71 Year
  Sex: Female
  Weight: 50 kg

DRUGS (2)
  1. REMDESIVIR (EUA) (REMDESIVIR (EUA)) [Suspect]
     Active Substance: REMDESIVIR
     Indication: UPPER RESPIRATORY TRACT INFECTION
     Route: 042
     Dates: start: 20200724, end: 20200728
  2. DEXAMETHASONE (DEXAMETHASONE ACETATE 8MG/ML INJ, SUSP) [Suspect]
     Active Substance: DEXAMETHASONE ACETATE
     Indication: UPPER RESPIRATORY TRACT INFECTION
     Route: 042
     Dates: start: 20200724, end: 20200728

REACTIONS (1)
  - Death [None]

NARRATIVE: CASE EVENT DATE: 20201108
